FAERS Safety Report 8801120 (Version 2)
Quarter: 2012Q4

REPORT INFORMATION
  Report Type: 
  Country: ES (occurrence: ES)
  Receive Date: 20120920
  Receipt Date: 20121120
  Transmission Date: 20130627
  Serious: Yes (Hospitalization, Other)
  Sender: FDA-Public Use
  Company Number: ES-UCBSA-066109

PATIENT
  Sex: Female

DRUGS (1)
  1. CIMZIA [Suspect]
     Indication: RHEUMATOID ARTHRITIS
     Dates: start: 20120717, end: 20120830

REACTIONS (3)
  - Erythema multiforme [Recovered/Resolved]
  - Inflammatory bowel disease [Unknown]
  - Skin lesion [Unknown]
